FAERS Safety Report 12761378 (Version 2)
Quarter: 2016Q4

REPORT INFORMATION
  Report Type: Report from Study
  Country: JP (occurrence: JP)
  Receive Date: 20160920
  Receipt Date: 20161014
  Transmission Date: 20170207
  Serious: Yes (Other)
  Sender: FDA-Public Use
  Company Number: JP-ROCHE-1830822

PATIENT

DRUGS (6)
  1. GOLIMUMAB [Suspect]
     Active Substance: GOLIMUMAB
     Indication: RHEUMATOID ARTHRITIS
     Route: 065
  2. ADALIMUMAB [Suspect]
     Active Substance: ADALIMUMAB
     Indication: RHEUMATOID ARTHRITIS
     Route: 065
  3. ABATACEPT [Suspect]
     Active Substance: ABATACEPT
     Indication: RHEUMATOID ARTHRITIS
     Route: 065
  4. TOCILIZUMAB [Suspect]
     Active Substance: TOCILIZUMAB
     Indication: RHEUMATOID ARTHRITIS
     Route: 065
  5. ETANERCEPT [Suspect]
     Active Substance: ETANERCEPT
     Indication: RHEUMATOID ARTHRITIS
     Route: 065
  6. INFLIXIMAB [Suspect]
     Active Substance: INFLIXIMAB
     Indication: RHEUMATOID ARTHRITIS
     Route: 065

REACTIONS (20)
  - Lung neoplasm malignant [Unknown]
  - Skin cancer [Unknown]
  - Lip and/or oral cavity cancer [Unknown]
  - Colon cancer [Unknown]
  - Thyroid cancer [Unknown]
  - Hepatic cancer [Unknown]
  - Bile duct cancer [Unknown]
  - Ovarian cancer [Unknown]
  - Lymphoma [Unknown]
  - Leukaemia [Unknown]
  - Plasma cell myeloma [Unknown]
  - Pancreatic carcinoma [Unknown]
  - Renal cancer [Unknown]
  - Uterine cancer [Unknown]
  - Gastric cancer [Unknown]
  - Prostate cancer [Unknown]
  - Bladder cancer [Unknown]
  - Oesophageal carcinoma [Unknown]
  - Breast cancer [Unknown]
  - Laryngeal cancer [Unknown]
